FAERS Safety Report 8806489 (Version 2)
Quarter: 2012Q4

REPORT INFORMATION
  Report Type: 
  Country: US (occurrence: US)
  Receive Date: 20120925
  Receipt Date: 20121218
  Transmission Date: 20130627
  Serious: Yes (Hospitalization)
  Sender: FDA-Public Use
  Company Number: US-BAYER-2012-097525

PATIENT
  Age: 28 Year
  Sex: Female
  Weight: 74.83 kg

DRUGS (7)
  1. YAZ [Suspect]
     Indication: ACNE
     Dosage: UNK
     Dates: start: 200810, end: 200909
  2. YAZ [Suspect]
     Indication: MENSTRUAL CYCLE MANAGEMENT
  3. PROTONIX [Concomitant]
  4. PROTONIX [Concomitant]
  5. FLAGYL [Concomitant]
  6. VICODIN [Concomitant]
  7. PROTON PUMP INHIBITORS [Concomitant]

REACTIONS (9)
  - Injury [None]
  - Pain [None]
  - Pain [None]
  - Cholelithiasis [None]
  - Abdominal pain [None]
  - Off label use [None]
  - Pancreatitis [None]
  - Cholecystitis chronic [None]
  - Bile duct stone [None]
